FAERS Safety Report 10048967 (Version 3)
Quarter: 2014Q2

REPORT INFORMATION
  Report Type: Report from Study
  Country: US (occurrence: US)
  Receive Date: 20140331
  Receipt Date: 20140624
  Transmission Date: 20141212
  Serious: Yes (Other)
  Sender: FDA-Public Use
  Company Number: US-ABBVIE-14P-163-1215843-00

PATIENT
  Sex: Female

DRUGS (6)
  1. HUMIRA [Suspect]
     Indication: PSORIATIC ARTHROPATHY
     Dosage: DAY 1
     Route: 058
     Dates: start: 20140313, end: 20140313
  2. HUMIRA [Suspect]
     Route: 058
  3. COZAAR [Concomitant]
     Indication: HYPERTENSION
     Dosage: LOW DOSE
  4. FUROSEMIDE [Concomitant]
     Indication: LOCAL SWELLING
  5. DULERA [Concomitant]
     Indication: PULMONARY FIBROSIS
     Dosage: DAILY
  6. SINGULAIR [Concomitant]
     Indication: PULMONARY FIBROSIS
     Dosage: DAILY

REACTIONS (5)
  - Fatigue [Not Recovered/Not Resolved]
  - Injection site pain [Not Recovered/Not Resolved]
  - Dry skin [Not Recovered/Not Resolved]
  - Arthralgia [Not Recovered/Not Resolved]
  - Back pain [Not Recovered/Not Resolved]
